FAERS Safety Report 20315076 (Version 1)
Quarter: 2022Q1

REPORT INFORMATION
  Report Type: Spontaneous
  Country: US (occurrence: None)
  Receive Date: 20220110
  Receipt Date: 20220110
  Transmission Date: 20220423
  Serious: No
  Sender: FDA-Public Use
  Company Number: US-ROCHE-2724447

PATIENT
  Age: 43 Year
  Sex: Female
  Weight: 47.670 kg

DRUGS (4)
  1. RITUXAN [Suspect]
     Active Substance: RITUXIMAB
     Indication: Multiple sclerosis
     Dosage: 2 INFUSIONS SEPARATED BY 2 WEEKS
     Route: 042
     Dates: start: 201910, end: 20191104
  2. RITUXAN [Suspect]
     Active Substance: RITUXIMAB
     Route: 042
     Dates: start: 20200505
  3. ZYRTEC (UNITED STATES) [Concomitant]
     Route: 048
     Dates: start: 201911
  4. PEPCID [Concomitant]
     Active Substance: FAMOTIDINE
     Route: 048
     Dates: start: 201911

REACTIONS (5)
  - Rash erythematous [Recovered/Resolved]
  - Oral discomfort [Unknown]
  - Oropharyngeal pain [Not Recovered/Not Resolved]
  - Intentional product use issue [Unknown]
  - Off label use [Unknown]

NARRATIVE: CASE EVENT DATE: 20191001
